FAERS Safety Report 4952670-7 (Version None)
Quarter: 2006Q1

REPORT INFORMATION
  Report Type: 
  Country: None (occurrence: None)
  Receive Date: 20060324
  Receipt Date: 20051007
  Transmission Date: 20060701
  Serious: Yes (Death, Hospitalization)
  Sender: FDA-Public Use
  Company Number: DE-ABBOTT-05P-062-0313174-00

PATIENT
  Sex: Female

DRUGS (5)
  1. ERGENYL CHRONO TABLETS PR [Suspect]
     Indication: EPILEPSY
     Route: 048
     Dates: start: 20041122
  2. ACETYLSALICYLIC ACID SRT [Concomitant]
     Indication: CEREBROVASCULAR ACCIDENT
     Route: 048
     Dates: start: 20031219
  3. GLIBENCLAMIDE [Concomitant]
     Indication: DIABETES MELLITUS
  4. ANTILIPAEMIC [Concomitant]
     Indication: HYPERLIPIDAEMIA
     Route: 048
  5. LISINOPRIL [Concomitant]
     Indication: HYPERTENSION
     Route: 048

REACTIONS (1)
  - CEREBRAL INFARCTION [None]
